FAERS Safety Report 21399624 (Version 1)
Quarter: 2022Q4

REPORT INFORMATION
  Report Type: Spontaneous
  Country: US (occurrence: US)
  Receive Date: 20221001
  Receipt Date: 20221001
  Transmission Date: 20230113
  Serious: Yes (Other)
  Sender: FDA-Public Use
  Company Number: US-TAKEDA-2022TUS068211

PATIENT
  Sex: Male
  Weight: 78 kg

DRUGS (1)
  1. MOTEGRITY [Suspect]
     Active Substance: PRUCALOPRIDE SUCCINATE
     Indication: Gastrooesophageal reflux disease
     Dosage: 2 MILLIGRAM, QD
     Route: 065

REACTIONS (4)
  - Sinus operation [Unknown]
  - Off label use [Unknown]
  - Inability to afford medication [Unknown]
  - Insomnia [Unknown]
